FAERS Safety Report 6130648-8 (Version None)
Quarter: 2009Q1

REPORT INFORMATION
  Report Type: 
  Country: None (occurrence: None)
  Receive Date: 20090323
  Receipt Date: 20090308
  Transmission Date: 20090719
  Serious: Yes (Other)
  Sender: FDA-Public Use
  Company Number: 2007S1006135

PATIENT
  Age: 66 Year
  Sex: Male
  Weight: 90.7194 kg

DRUGS (6)
  1. PHOSPHOSODA FLAVOR NOT SPECIFIED [Suspect]
     Dosage: TOTAL;PO
     Route: 048
     Dates: start: 20050130, end: 20050130
  2. BENAZEPRIL HYDROCHLORIDE [Concomitant]
  3. TERAZOSIN HCL [Concomitant]
  4. OXYBUTYNIN CHLORIDE [Concomitant]
  5. MOTRIN [Concomitant]
  6. PINAZEPAM [Concomitant]

REACTIONS (5)
  - DRUG TOXICITY [None]
  - ECONOMIC PROBLEM [None]
  - HYPERPHOSPHATAEMIA [None]
  - INJURY [None]
  - RENAL FAILURE [None]
